FAERS Safety Report 11953982 (Version 2)
Quarter: 2016Q1

REPORT INFORMATION
  Report Type: Spontaneous
  Country: JP (occurrence: JP)
  Receive Date: 20160126
  Receipt Date: 20160329
  Transmission Date: 20160526
  Serious: Yes (Death)
  Sender: FDA-Public Use
  Company Number: JP-ELI_LILLY_AND_COMPANY-JP201601008270

PATIENT
  Age: 70 Year
  Sex: Male
  Weight: 63 kg

DRUGS (8)
  1. GEMZAR [Suspect]
     Active Substance: GEMCITABINE HYDROCHLORIDE
     Indication: PANCREATIC CARCINOMA STAGE IV
     Dosage: 1600 MG, OTHER
     Route: 042
     Dates: start: 20150319, end: 20150326
  2. WARFARIN                           /00014803/ [Concomitant]
     Active Substance: WARFARIN
     Dosage: UNK
     Route: 048
     Dates: start: 2013
  3. ABRAXANE [Concomitant]
     Active Substance: PACLITAXEL
     Indication: PANCREATIC CARCINOMA STAGE IV
     Dosage: 200 MG, OTHER
     Route: 042
     Dates: start: 20150319, end: 20150326
  4. ALOXI [Concomitant]
     Active Substance: PALONOSETRON HYDROCHLORIDE
     Indication: PROPHYLAXIS
     Dosage: 0.75 MG, UNK
     Route: 042
     Dates: start: 20150319, end: 20150326
  5. BAYASPIRIN [Concomitant]
     Active Substance: ASPIRIN
     Dosage: UNK
     Route: 048
     Dates: start: 2013
  6. NEXIUM [Concomitant]
     Active Substance: ESOMEPRAZOLE MAGNESIUM
     Dosage: UNK
     Route: 048
     Dates: start: 2013
  7. MAINTATE [Concomitant]
     Active Substance: BISOPROLOL FUMARATE
     Dosage: UNK
     Route: 048
     Dates: start: 2013
  8. DECADRON [Concomitant]
     Active Substance: DEXAMETHASONE
     Indication: PROPHYLAXIS
     Dosage: 6.6 MG, UNK
     Route: 042
     Dates: start: 20150319, end: 20150326

REACTIONS (2)
  - Cardio-respiratory arrest [Fatal]
  - Decreased appetite [Unknown]

NARRATIVE: CASE EVENT DATE: 20150326
